FAERS Safety Report 25810071 (Version 1)
Quarter: 2025Q3

REPORT INFORMATION
  Report Type: Spontaneous
  Country: AU (occurrence: AU)
  Receive Date: 20250917
  Receipt Date: 20250917
  Transmission Date: 20251020
  Serious: Yes (Hospitalization, Disabling)
  Sender: SANDOZ
  Company Number: AU-MLMSERVICE-20250825-PI625405-00270-1

PATIENT
  Age: 40 Year
  Sex: Female

DRUGS (4)
  1. MYCOPHENOLATE MOFETIL [Suspect]
     Active Substance: MYCOPHENOLATE MOFETIL
     Indication: Immunosuppressant drug therapy
     Dosage: 1000 MG, Q12H
     Route: 065
  2. PREDNISOLONE [Suspect]
     Active Substance: PREDNISOLONE
     Indication: Eye inflammation
     Dosage: 5 MG, QD
     Route: 065
  3. PREDNISOLONE [Suspect]
     Active Substance: PREDNISOLONE
     Indication: Immunosuppressant drug therapy
     Dosage: 50 MG, QD COMMENCED ON D + 15
     Route: 065
  4. TACROLIMUS [Suspect]
     Active Substance: TACROLIMUS
     Indication: Immunosuppressant drug therapy
     Dosage: 1.5 MG, Q12H TARGET TROUGH LEVEL 6?8 MICROG/L
     Route: 065

REACTIONS (6)
  - Retinal haemorrhage [Recovering/Resolving]
  - Cystoid macular oedema [Recovering/Resolving]
  - Retinal degeneration [Recovering/Resolving]
  - Retinal vasculitis [Recovering/Resolving]
  - Dengue viraemia [Recovered/Resolved]
  - Decreased immune responsiveness [Recovering/Resolving]
